FAERS Safety Report 5000985-9 (Version None)
Quarter: 2006Q2

REPORT INFORMATION
  Report Type: 
  Country: None (occurrence: None)
  Receive Date: 20060512
  Receipt Date: 20060501
  Transmission Date: 20061013
  Serious: Yes (Disabling)
  Sender: FDA-Public Use
  Company Number: 2006AP02038

PATIENT
  Age: 19500 Day
  Sex: Female

DRUGS (4)
  1. PROPOFOL [Suspect]
     Indication: SEDATION
     Route: 042
     Dates: start: 20060424, end: 20060424
  2. NEXIUM [Concomitant]
  3. ZANTAC [Concomitant]
     Dosage: FOR LAST 5 YEARS
  4. VENTOLIN [Concomitant]
     Dosage: FOR YEARS
     Route: 055

REACTIONS (1)
  - PAROTITIS [None]
